FAERS Safety Report 23706283 (Version 1)
Quarter: 2024Q2

REPORT INFORMATION
  Report Type: Other
  Country: GB (occurrence: None)
  Receive Date: 20240404
  Receipt Date: 20240404
  Transmission Date: 20240716
  Serious: Yes (Hospitalization, Other)
  Sender: FDA-Public Use
  Company Number: GB-ROCHE-1679211

PATIENT
  Sex: Female

DRUGS (2)
  1. TOCILIZUMAB [Suspect]
     Active Substance: TOCILIZUMAB
     Indication: Rheumatoid arthritis
     Route: 058
     Dates: start: 20150416
  2. TOCILIZUMAB [Suspect]
     Active Substance: TOCILIZUMAB
     Route: 058
     Dates: start: 20150430

REACTIONS (5)
  - Malaise [Unknown]
  - Viral infection [Unknown]
  - Pneumonia [Unknown]
  - Herpes zoster [Unknown]
  - Herpes zoster [Unknown]
